FAERS Safety Report 21107686 (Version 1)
Quarter: 2022Q3

REPORT INFORMATION
  Report Type: Report from Study
  Country: US (occurrence: US)
  Receive Date: 20220720
  Receipt Date: 20220720
  Transmission Date: 20221026
  Serious: Yes (Other)
  Sender: FDA-Public Use
  Company Number: US-GILEAD-2022-0589668

PATIENT
  Sex: Male

DRUGS (1)
  1. AZTREONAM LYSINE [Suspect]
     Active Substance: AZTREONAM LYSINE
     Indication: Cystic fibrosis
     Dosage: 75 MG, 28 DAYS ON AND 28 DAYS OFF. QUANTITY OF 84
     Route: 065
     Dates: start: 20141012

REACTIONS (2)
  - Autism spectrum disorder [Unknown]
  - Attention deficit hyperactivity disorder [Not Recovered/Not Resolved]
